FAERS Safety Report 17287893 (Version 1)
Quarter: 2020Q1

REPORT INFORMATION
  Report Type: Spontaneous
  Country: US (occurrence: US)
  Receive Date: 20200120
  Receipt Date: 20200120
  Transmission Date: 20200409
  Serious: Yes (Death, Life-Threatening, Hospitalization)
  Sender: FDA-Public Use
  Company Number: US-STRIDES ARCOLAB LIMITED-2020SP000520

PATIENT
  Age: 62 Year
  Sex: Female

DRUGS (2)
  1. PREDNISOLONE. [Suspect]
     Active Substance: PREDNISOLONE
     Indication: SYSTEMIC LUPUS ERYTHEMATOSUS
     Dosage: UNK
     Route: 065
  2. MYCOPHENOLATE MOFETIL. [Suspect]
     Active Substance: MYCOPHENOLATE MOFETIL
     Indication: SYSTEMIC LUPUS ERYTHEMATOSUS
     Dosage: UNK
     Route: 065

REACTIONS (14)
  - Stenotrophomonas infection [Unknown]
  - Rash [Unknown]
  - Varicella zoster virus infection [Fatal]
  - Pneumothorax [Unknown]
  - Pneumonia bacterial [Unknown]
  - Acute respiratory distress syndrome [Fatal]
  - Septic shock [Fatal]
  - Herpes simplex [Fatal]
  - Dyspnoea [Unknown]
  - Off label use [Unknown]
  - Hypoxia [Not Recovered/Not Resolved]
  - Multiple organ dysfunction syndrome [Fatal]
  - Lung infiltration [Fatal]
  - Hypotension [Unknown]
